FAERS Safety Report 5664979-2 (Version None)
Quarter: 2008Q1

REPORT INFORMATION
  Report Type: 
  Country: None (occurrence: None)
  Receive Date: 20080314
  Receipt Date: 20080304
  Transmission Date: 20080703
  Serious: Yes (Hospitalization)
  Sender: FDA-Public Use
  Company Number: CA-PFIZER INC-2008014791

PATIENT
  Sex: Male
  Weight: 77.1 kg

DRUGS (7)
  1. LIPITOR [Suspect]
     Route: 048
     Dates: start: 20080101, end: 20080201
  2. TEGRETOL [Interacting]
  3. SYNTHROID [Concomitant]
  4. EPIVAL [Concomitant]
  5. EPIVAL [Concomitant]
     Dosage: TEXT:250 MG-FREQ:AT BEDTIME
  6. ASAPHEN [Concomitant]
  7. SOTALOL [Concomitant]

REACTIONS (11)
  - DIARRHOEA [None]
  - DIZZINESS [None]
  - DRUG INTERACTION [None]
  - FALL [None]
  - FEELING ABNORMAL [None]
  - HEADACHE [None]
  - HYPOAESTHESIA [None]
  - MALAISE [None]
  - PALPITATIONS [None]
  - VOMITING [None]
  - WRONG DRUG ADMINISTERED [None]
